FAERS Safety Report 24984198 (Version 2)
Quarter: 2025Q2

REPORT INFORMATION
  Report Type: Other
  Country: AU (occurrence: AU)
  Receive Date: 20250219
  Receipt Date: 20250614
  Transmission Date: 20250716
  Serious: Yes (Hospitalization, Other)
  Sender: ANI
  Company Number: AU-ANIPHARMA-015617

PATIENT
  Sex: Male

DRUGS (15)
  1. OXYCODONE [Suspect]
     Active Substance: OXYCODONE
     Indication: Cancer pain
  2. MORPHINE [Suspect]
     Active Substance: MORPHINE
     Indication: Cancer pain
  3. ACETAMINOPHEN [Concomitant]
     Active Substance: ACETAMINOPHEN
     Indication: Cancer pain
  4. PARECOXIB [Concomitant]
     Active Substance: PARECOXIB
     Indication: Cancer pain
  5. KETAMINE [Concomitant]
     Active Substance: KETAMINE
     Indication: Cancer pain
  6. LIDOCAINE [Concomitant]
     Active Substance: LIDOCAINE
     Indication: Cancer pain
     Route: 062
  7. FENTANYL [Concomitant]
     Active Substance: FENTANYL
     Indication: Cancer pain
     Route: 062
  8. PREGABALIN [Concomitant]
     Active Substance: PREGABALIN
     Indication: Cancer pain
  9. GABAPENTIN [Concomitant]
     Active Substance: GABAPENTIN
     Indication: Cancer pain
  10. METHADONE [Concomitant]
     Active Substance: METHADONE HYDROCHLORIDE
     Indication: Cancer pain
  11. DULOXETINE [Concomitant]
     Active Substance: DULOXETINE
     Indication: Cancer pain
  12. CELECOXIB [Concomitant]
     Active Substance: CELECOXIB
     Indication: Cancer pain
  13. TAPENTADOL [Concomitant]
     Active Substance: TAPENTADOL
     Indication: Cancer pain
  14. PREGABALIN [Concomitant]
     Active Substance: PREGABALIN
     Indication: Cancer pain
  15. GABAPENTIN [Concomitant]
     Active Substance: GABAPENTIN
     Indication: Cancer pain

REACTIONS (1)
  - Neurotoxicity [Recovered/Resolved]
